FAERS Safety Report 23890032 (Version 1)
Quarter: 2024Q2

REPORT INFORMATION
  Report Type: Report from Study
  Country: US (occurrence: US)
  Receive Date: 20240523
  Receipt Date: 20240523
  Transmission Date: 20240716
  Serious: No
  Sender: FDA-Public Use
  Company Number: US-UCBSA-2022046564

PATIENT
  Age: 16 Year
  Sex: Male
  Weight: 42.5 kg

DRUGS (3)
  1. FINTEPLA [Suspect]
     Active Substance: FENFLURAMINE
     Indication: Severe myoclonic epilepsy of infancy
     Dosage: 0.5MG/KG DAILY
     Route: 048
  2. FINTEPLA [Suspect]
     Active Substance: FENFLURAMINE
     Dosage: 0.53 MILLIGRAM/KILOGRAM DAILY
     Route: 048
  3. FINTEPLA [Suspect]
     Active Substance: FENFLURAMINE
     Dosage: 0.54 MG/KG/DAY
     Route: 048

REACTIONS (1)
  - Mitral valve thickening [Unknown]

NARRATIVE: CASE EVENT DATE: 20210715
